FAERS Safety Report 9420145 (Version 2)
Quarter: 2013Q4

REPORT INFORMATION
  Report Type: Spontaneous
  Country: BR (occurrence: BR)
  Receive Date: 20130725
  Receipt Date: 20131014
  Transmission Date: 20140711
  Serious: Yes (Other)
  Sender: FDA-Public Use
  Company Number: BR-BAYER-2013-087367

PATIENT
  Age: 24 Year
  Sex: Female

DRUGS (2)
  1. QLAIRA [Suspect]
     Dosage: UNK
     Route: 048
     Dates: start: 2011
  2. EXODUS [Concomitant]
     Route: 048

REACTIONS (4)
  - Enterocolitis infectious [Recovered/Resolved]
  - Diarrhoea [Recovered/Resolved]
  - Viral infection [Recovered/Resolved]
  - Metrorrhagia [None]
